FAERS Safety Report 5056483-X (Version None)
Quarter: 2006Q3

REPORT INFORMATION
  Report Type: 
  Country: None (occurrence: None)
  Receive Date: 20060714
  Receipt Date: 20060629
  Transmission Date: 20061208
  Serious: Yes (Hospitalization)
  Sender: FDA-Public Use
  Company Number: 163-C5013-06050382

PATIENT
  Age: 74 Year
  Sex: Male
  Weight: 72.1 kg

DRUGS (2)
  1. CC-5013 (LENALIDOMIDE) (CAPSULES) [Suspect]
     Indication: MULTIPLE MYELOMA
     Dosage: 25 MG, 1 IN 1 D, ORAL
     Route: 048
     Dates: start: 20060228, end: 20060502
  2. DEXAMETHASONE [Suspect]
     Indication: MULTIPLE MYELOMA
     Dosage: 40 MG ORAL
     Route: 048
     Dates: start: 20060228, end: 20060502

REACTIONS (3)
  - DEHYDRATION [None]
  - ILEUS [None]
  - NAUSEA [None]
